FAERS Safety Report 4589503-7 (Version None)
Quarter: 2005Q1

REPORT INFORMATION
  Report Type: 
  Country: None (occurrence: None)
  Receive Date: 20050216
  Receipt Date: 20041216
  Transmission Date: 20050727
  Serious: Yes (Other)
  Sender: FDA-Public Use
  Company Number: 2004118080

PATIENT
  Age: 64 Year
  Sex: Female

DRUGS (2)
  1. CELEBREX [Suspect]
     Indication: ARTHRALGIA
     Dosage: 200 MG (100 MG, BID INTERVAL:  EVERY DAY), ORAL
     Route: 048
     Dates: start: 20030109, end: 20030216
  2. CELEBREX [Suspect]
     Indication: OSTEOARTHRITIS
     Dosage: 200 MG (100 MG, BID INTERVAL:  EVERY DAY), ORAL
     Route: 048
     Dates: start: 20030109, end: 20030216

REACTIONS (3)
  - EYE PRURITUS [None]
  - RASH ERYTHEMATOUS [None]
  - RASH PRURITIC [None]
